FAERS Safety Report 6608635-2 (Version None)
Quarter: 2010Q1

REPORT INFORMATION
  Report Type: 
  Country: None (occurrence: None)
  Receive Date: 20100226
  Receipt Date: 20100226
  Transmission Date: 20100710
  Serious: No
  Sender: FDA-Public Use
  Company Number: None

PATIENT
  Age: 37 Year
  Sex: Male
  Weight: 79.3795 kg

DRUGS (5)
  1. PALIPERIDONE [Suspect]
     Dosage: 9MG PO
     Route: 048
  2. DEPAKOTE [Concomitant]
  3. QUETIAPINE [Concomitant]
  4. CLONAZEPAM [Concomitant]
  5. HALOPERIDOL [Concomitant]

REACTIONS (1)
  - OEDEMA [None]
